FAERS Safety Report 7893496-4 (Version None)
Quarter: 2011Q4

REPORT INFORMATION
  Report Type: 
  Country: None (occurrence: None)
  Receive Date: 20111104
  Receipt Date: 20111102
  Transmission Date: 20120403
  Serious: Yes (Other)
  Sender: FDA-Public Use
  Company Number: US-GLAXOSMITHKLINE-A0951705A

PATIENT
  Sex: Male

DRUGS (1)
  1. ABREVA [Suspect]
     Indication: PRODUCT USED FOR UNKNOWN INDICATION
     Route: 061

REACTIONS (4)
  - SCAB [None]
  - LIP PAIN [None]
  - LIP SWELLING [None]
  - WOUND HAEMORRHAGE [None]
